FAERS Safety Report 7584543-8 (Version None)
Quarter: 2011Q2

REPORT INFORMATION
  Report Type: 
  Country: None (occurrence: None)
  Receive Date: 20110630
  Receipt Date: 20110628
  Transmission Date: 20111010
  Serious: Yes (Other)
  Sender: FDA-Public Use
  Company Number: AU-PFIZER INC-2010075976

PATIENT
  Sex: Female

DRUGS (3)
  1. LYRICA [Suspect]
     Dosage: 18.75 MG, 2X/DAY
     Dates: start: 20100501
  2. LYRICA [Suspect]
     Indication: FIBROMYALGIA
     Dosage: 37.5 MG, 2X/DAY
     Dates: start: 20100501, end: 20101224
  3. LYRICA [Suspect]
     Dosage: 37.5 MG, 1X/DAY IN THE MORNING

REACTIONS (13)
  - HEADACHE [None]
  - DISTURBANCE IN ATTENTION [None]
  - MOUTH ULCERATION [None]
  - CHOKING [None]
  - SWOLLEN TONGUE [None]
  - MOOD ALTERED [None]
  - ANGER [None]
  - WEIGHT INCREASED [None]
  - NAUSEA [None]
  - DRY MOUTH [None]
  - PAIN [None]
  - SELF-INJURIOUS IDEATION [None]
  - FEELING COLD [None]
